FAERS Safety Report 4629716-9 (Version None)
Quarter: 2005Q1

REPORT INFORMATION
  Report Type: 
  Country: None (occurrence: None)
  Receive Date: 20050107
  Receipt Date: 20041103
  Transmission Date: 20050727
  Serious: No
  Sender: FDA-Public Use
  Company Number: 235672K04USA

PATIENT
  Age: 40 Year
  Sex: Female

DRUGS (1)
  1. REBIF [Suspect]
     Indication: MULTIPLE SCLEROSIS
     Dosage: 8.8 MCG, 3 IN 1 WEEKS, SUBCUTANEOUS
     Route: 058
     Dates: start: 20041026

REACTIONS (6)
  - FLUSHING [None]
  - HYPERHIDROSIS [None]
  - HYPOKINESIA [None]
  - MOBILITY DECREASED [None]
  - NIGHT SWEATS [None]
  - PYREXIA [None]
